FAERS Safety Report 6616881-7 (Version None)
Quarter: 2010Q1

REPORT INFORMATION
  Report Type: 
  Country: None (occurrence: None)
  Receive Date: 20100301
  Receipt Date: 20100217
  Transmission Date: 20100710
  Serious: Yes (Other)
  Sender: FDA-Public Use
  Company Number: 2010SP010265

PATIENT
  Age: 67 Year
  Sex: Male

DRUGS (1)
  1. ONCOTICE [Suspect]
     Indication: BLADDER CANCER
     Dosage: 12.5 MG;QW;INVES
     Dates: start: 20090629, end: 20090706

REACTIONS (3)
  - ABNORMAL BEHAVIOUR [None]
  - DISORIENTATION [None]
  - SPEECH DISORDER [None]
